FAERS Safety Report 20707717 (Version 2)
Quarter: 2022Q2

REPORT INFORMATION
  Report Type: Report from Study
  Country: KR (occurrence: KR)
  Receive Date: 20220413
  Receipt Date: 20220427
  Transmission Date: 20220720
  Serious: Yes (Life-Threatening, Hospitalization, Other)
  Sender: FDA-Public Use
  Company Number: KR-CELLTRION INC.-2022KR004488

PATIENT

DRUGS (5)
  1. HERZUMA [Suspect]
     Active Substance: TRASTUZUMAB-PKRB
     Indication: Salivary gland cancer
     Dosage: 429 MG, EVERY 3 WEEKS
     Route: 042
     Dates: start: 20180919, end: 20220316
  2. EZETIMIBE\ROSUVASTATIN [Concomitant]
     Active Substance: EZETIMIBE\ROSUVASTATIN
     Indication: Prophylaxis
     Dosage: ONE TAB, ONCE
     Route: 048
     Dates: start: 20210120
  3. BISOPROLOL [Concomitant]
     Active Substance: BISOPROLOL
     Indication: Angina pectoris
     Dosage: 2.5 MILLIGRAM, QD
     Route: 048
     Dates: start: 20210120
  4. VALSARTAN [Concomitant]
     Active Substance: VALSARTAN
     Indication: Angina pectoris
     Dosage: 20 MILLIGRAM, ONCE
     Route: 048
     Dates: start: 20210120
  5. CARVEDILOL [Concomitant]
     Active Substance: CARVEDILOL
     Indication: Angina pectoris
     Dosage: CARVEDILOL SR (8MG, ONCE)
     Route: 048
     Dates: start: 20210120

REACTIONS (4)
  - Aortic aneurysm repair [Recovered/Resolved]
  - Aortic aneurysm [Recovered/Resolved]
  - Stent-graft endoleak [Recovered/Resolved]
  - Off label use [Unknown]

NARRATIVE: CASE EVENT DATE: 20220406
